FAERS Safety Report 8340376-6 (Version None)
Quarter: 2012Q2

REPORT INFORMATION
  Report Type: 
  Country: None (occurrence: None)
  Receive Date: 20120507
  Receipt Date: 20120501
  Transmission Date: 20120825
  Serious: Yes (Other)
  Sender: FDA-Public Use
  Company Number: US-PFIZER INC-2012108029

PATIENT
  Age: 62 Year
  Sex: Female

DRUGS (13)
  1. ZOLPIDEM TARTRATE [Concomitant]
     Indication: INSOMNIA
     Dosage: 10 MG, QHS
  2. ROPINIROLE HYDROCHLORIDE [Concomitant]
     Dosage: 0.5 MG, QAM AND QHS
  3. NORVASC [Suspect]
     Indication: HYPERTENSION
     Dosage: 10 MG, QHS
  4. DULOXETINE [Concomitant]
     Indication: ANXIETY
  5. TIZANIDINE [Concomitant]
     Indication: MUSCLE RELAXANT THERAPY
     Dosage: 4 MG, UNK
  6. POTASSIUM [Concomitant]
     Dosage: 20 MG, 2X/DAY
  7. DULOXETINE [Concomitant]
     Indication: DEPRESSION
     Dosage: 60 MG, QHS
  8. ESOMEPRAZOLE SODIUM [Concomitant]
     Indication: GASTROOESOPHAGEAL REFLUX DISEASE
     Dosage: 40 MG, QAM
  9. GABAPENTIN [Concomitant]
     Indication: NEUROPATHY PERIPHERAL
     Dosage: 300 MG, 2 TAB QAM, 4 TAB QHS
  10. ARTHROTEC [Concomitant]
     Indication: RHEUMATOID ARTHRITIS
     Dosage: 75 MG, QAM
  11. ALENDRONATE SODIUM [Concomitant]
     Indication: OSTEOPOROSIS
     Dosage: 70 MG, 1 IN 1 WEEK
  12. HUMIRA [Suspect]
     Indication: RHEUMATOID ARTHRITIS
     Dosage: 40 MG, 1 IN 2 WK
     Dates: start: 20100401
  13. FUROSEMIDE [Concomitant]
     Dosage: 40 MG QAM, 20 MG QPM

REACTIONS (8)
  - CENTRAL NERVOUS SYSTEM LESION [None]
  - INJECTION SITE PAIN [None]
  - BLOOD PRESSURE INCREASED [None]
  - DEVICE MALFUNCTION [None]
  - TRANSIENT ISCHAEMIC ATTACK [None]
  - OPTIC ISCHAEMIC NEUROPATHY [None]
  - BLINDNESS UNILATERAL [None]
  - INJECTION SITE HAEMORRHAGE [None]
